FAERS Safety Report 7348490-9 (Version None)
Quarter: 2011Q1

REPORT INFORMATION
  Report Type: 
  Country: None (occurrence: None)
  Receive Date: 20110314
  Receipt Date: 20110302
  Transmission Date: 20110831
  Serious: Yes (Hospitalization)
  Sender: FDA-Public Use
  Company Number: US-ASTRAZENECA-2011SE11532

PATIENT
  Age: 40 Year
  Sex: Female
  Weight: 74.8 kg

DRUGS (3)
  1. ZANTAC [Concomitant]
  2. NEXIUM [Suspect]
     Indication: INFECTION
     Route: 048
     Dates: start: 20100501, end: 20100501
  3. PREVACID [Concomitant]

REACTIONS (2)
  - GASTRIC BYPASS [None]
  - OFF LABEL USE [None]
